FAERS Safety Report 7909951-4 (Version None)
Quarter: 2011Q4

REPORT INFORMATION
  Report Type: 
  Country: None (occurrence: None)
  Receive Date: 20111111
  Receipt Date: 20111102
  Transmission Date: 20120403
  Serious: Yes (Hospitalization)
  Sender: FDA-Public Use
  Company Number: ES-JNJFOC-20111007899

PATIENT
  Sex: Female
  Weight: 51 kg

DRUGS (4)
  1. AZATHIOPRINE [Concomitant]
     Indication: CROHN'S DISEASE
     Dates: start: 20070629
  2. OMEPRAZOLE [Concomitant]
     Indication: GASTROINTESTINAL DISORDER THERAPY
     Dates: start: 20110816
  3. REMICADE [Suspect]
     Route: 042
     Dates: start: 20110914
  4. REMICADE [Suspect]
     Indication: CROHN'S DISEASE
     Route: 042
     Dates: start: 20110712

REACTIONS (2)
  - PERITONEAL TUBERCULOSIS [None]
  - GASTROINTESTINAL TOXICITY [None]
